APPROVED DRUG PRODUCT: NORTRIPTYLINE HYDROCHLORIDE
Active Ingredient: NORTRIPTYLINE HYDROCHLORIDE
Strength: EQ 75MG BASE
Dosage Form/Route: CAPSULE;ORAL
Application: A073667 | Product #004
Applicant: TEVA PHARMACEUTICALS USA INC
Approved: Apr 11, 1996 | RLD: No | RS: No | Type: DISCN